FAERS Safety Report 9732181 (Version 2)
Quarter: 2013Q4

REPORT INFORMATION
  Report Type: Report from Study
  Country: GB (occurrence: GB)
  Receive Date: 20131205
  Receipt Date: 20131227
  Transmission Date: 20140711
  Serious: Yes (Other)
  Sender: FDA-Public Use
  Company Number: GB-VERTEX PHARMACEUTICALS INC-2013-011585

PATIENT
  Age: 55 Year
  Sex: Male

DRUGS (3)
  1. VX-950 (TELAPREVIR) [Suspect]
     Indication: HEPATITIS C
     Dosage: 750 MG, TID
     Dates: start: 20131028
  2. INTERFERON [Suspect]
     Indication: HEPATITIS C
     Dosage: UNK UNK, BID
     Route: 058
     Dates: start: 20131028
  3. RIBAVIRIN [Suspect]
     Indication: HEPATITIS C
     Dosage: UNK, QW
     Route: 048
     Dates: start: 20131028

REACTIONS (4)
  - Urinary tract infection [Recovered/Resolved]
  - Fatigue [Not Recovered/Not Resolved]
  - Rash pruritic [Not Recovered/Not Resolved]
  - Vomiting [Recovered/Resolved]
